FAERS Safety Report 12902537 (Version 2)
Quarter: 2016Q4

REPORT INFORMATION
  Report Type: Spontaneous
  Country: NL (occurrence: NL)
  Receive Date: 20161102
  Receipt Date: 20161107
  Transmission Date: 20170207
  Serious: Yes (Hospitalization)
  Sender: FDA-Public Use
  Company Number: PHHY2016NL148482

PATIENT
  Age: 0 Day
  Sex: Male

DRUGS (2)
  1. OXCARBAZEPINE. [Suspect]
     Active Substance: OXCARBAZEPINE
     Indication: FOETAL EXPOSURE DURING PREGNANCY
     Dosage: UNK
     Route: 064
     Dates: start: 2015
  2. PHYTOMENADIONE [Suspect]
     Active Substance: PHYTONADIONE
     Indication: FOETAL EXPOSURE DURING PREGNANCY
     Dosage: UNK
     Route: 064
     Dates: start: 201609, end: 20161014

REACTIONS (2)
  - Neonatal disorder [Recovering/Resolving]
  - Selective eating disorder [Recovering/Resolving]

NARRATIVE: CASE EVENT DATE: 20161014
